FAERS Safety Report 6571988-8 (Version None)
Quarter: 2010Q1

REPORT INFORMATION
  Report Type: 
  Country: None (occurrence: None)
  Receive Date: 20100205
  Receipt Date: 20100125
  Transmission Date: 20100710
  Serious: Yes (Hospitalization, Other)
  Sender: FDA-Public Use
  Company Number: ES-ELI_LILLY_AND_COMPANY-ES201002000019

PATIENT
  Sex: Male
  Weight: 25.5 kg

DRUGS (3)
  1. ATOMOXETINE HCL [Suspect]
     Indication: ATTENTION DEFICIT/HYPERACTIVITY DISORDER
     Dosage: 0.5 MG/KG, DAILY (1/D) VISIT 2, 3 PERIOD II
     Route: 048
     Dates: start: 20091020
  2. ATOMOXETINE HCL [Suspect]
     Dosage: 1.2 MG/KG, DAILY (1/D) VISIT4,5,6 PERIOD II
     Route: 048
  3. ATOMOXETINE HCL [Suspect]
     Dosage: 1.8 MG/KG, DAILY (1/D) PERIOD III
     Route: 048
     Dates: start: 20091229, end: 20100120

REACTIONS (2)
  - RASH [None]
  - VITH NERVE PARALYSIS [None]
